FAERS Safety Report 22006852 (Version 3)
Quarter: 2024Q3

REPORT INFORMATION
  Report Type: Spontaneous
  Country: JP (occurrence: JP)
  Receive Date: 20230217
  Receipt Date: 20240919
  Transmission Date: 20241016
  Serious: No
  Sender: ROCHE
  Company Number: JP-CHUGAI-2023003973

PATIENT
  Age: 4 Decade
  Sex: Female

DRUGS (1)
  1. TAMIFLU [Suspect]
     Active Substance: OSELTAMIVIR PHOSPHATE
     Indication: Product used for unknown indication
     Dosage: 150 MILLIGRAM, BID
     Route: 048

REACTIONS (3)
  - Maternal exposure during pregnancy [Unknown]
  - Accidental overdose [Unknown]
  - No adverse event [Unknown]
